FAERS Safety Report 4459002-1 (Version None)
Quarter: 2004Q3

REPORT INFORMATION
  Report Type: 
  Country: None (occurrence: None)
  Receive Date: 20040922
  Receipt Date: 20040922
  Transmission Date: 20050211
  Serious: No
  Sender: FDA-Public Use
  Company Number: None

PATIENT
  Age: 67 Year
  Weight: 52.6173 kg

DRUGS (1)
  1. HYDROMORPHONE HCL [Suspect]
     Indication: POST PROCEDURAL PAIN
     Dosage: 1 MG IUP
     Dates: start: 20040729

REACTIONS (2)
  - CARDIAC ARREST [None]
  - PLEURAL EFFUSION [None]
